FAERS Safety Report 17763176 (Version 1)
Quarter: 2020Q2

REPORT INFORMATION
  Report Type: Spontaneous
  Country: DE (occurrence: DE)
  Receive Date: 20200508
  Receipt Date: 20200508
  Transmission Date: 20200714
  Serious: Yes (Other)
  Sender: FDA-Public Use
  Company Number: DE-INSUD PHARMA-2005DE00067

PATIENT

DRUGS (3)
  1. PROGESTERONE. [Suspect]
     Active Substance: PROGESTERONE
     Indication: MENOPAUSAL SYMPTOMS
     Dosage: 1 TABLET IN THE EVENING
     Route: 048
     Dates: start: 20200203, end: 20200303
  2. BISOPROLOL [Concomitant]
     Active Substance: BISOPROLOL
     Indication: ARRHYTHMIA
     Dosage: 0.5 DOSAGE FORM, DAILY
     Route: 065
  3. ESTRASORB [Suspect]
     Active Substance: ESTRADIOL HEMIHYDRATE
     Indication: MENOPAUSAL SYMPTOMS
     Dosage: 1 PUMP RIGHT AND LEFT FOREARM
     Route: 061
     Dates: start: 20200203, end: 20200303

REACTIONS (3)
  - Condition aggravated [Recovering/Resolving]
  - Arrhythmia [Recovering/Resolving]
  - Anxiety [Unknown]

NARRATIVE: CASE EVENT DATE: 20200203
